FAERS Safety Report 6539620-7 (Version None)
Quarter: 2010Q1

REPORT INFORMATION
  Report Type: 
  Country: None (occurrence: None)
  Receive Date: 20100115
  Receipt Date: 20100106
  Transmission Date: 20100710
  Serious: Yes (Hospitalization)
  Sender: FDA-Public Use
  Company Number: FR-ELI_LILLY_AND_COMPANY-FR201001000667

PATIENT
  Sex: Female
  Weight: 47 kg

DRUGS (2)
  1. GEMCITABINE HCL [Suspect]
     Indication: NON-SMALL CELL LUNG CANCER
     Dosage: 1800 MG, UNK
     Route: 042
     Dates: start: 20081211
  2. CISPLATIN [Suspect]
     Indication: NON-SMALL CELL LUNG CANCER
     Dosage: 116 MG, UNK
     Route: 042
     Dates: start: 20081211

REACTIONS (2)
  - DEHYDRATION [None]
  - RENAL FAILURE [None]
